FAERS Safety Report 11854277 (Version 1)
Quarter: 2015Q4

REPORT INFORMATION
  Report Type: Spontaneous
  Country: US (occurrence: US)
  Receive Date: 20151220
  Receipt Date: 20151220
  Transmission Date: 20160305
  Serious: Yes (Other)
  Sender: FDA-Public Use
  Company Number: US-PAR PHARMACEUTICAL COMPANIES-2015SCPR015016

PATIENT

DRUGS (1)
  1. BUPROPION HCL XL TABLETS [Suspect]
     Active Substance: BUPROPION HYDROCHLORIDE
     Indication: PRODUCT USED FOR UNKNOWN INDICATION
     Dosage: 1 DF, SINGLE
     Route: 048
     Dates: start: 20151204, end: 20151204

REACTIONS (9)
  - Urticaria [Not Recovered/Not Resolved]
  - Drug hypersensitivity [None]
  - Pharyngeal oedema [Not Recovered/Not Resolved]
  - Ear swelling [Not Recovered/Not Resolved]
  - Product substitution issue [None]
  - Throat irritation [Not Recovered/Not Resolved]
  - Pruritus generalised [Not Recovered/Not Resolved]
  - Ear discomfort [Not Recovered/Not Resolved]
  - Rash [Not Recovered/Not Resolved]

NARRATIVE: CASE EVENT DATE: 20151205
